FAERS Safety Report 11745898 (Version 1)
Quarter: 2015Q4

REPORT INFORMATION
  Report Type: Spontaneous
  Country: US (occurrence: None)
  Receive Date: 20151116
  Receipt Date: 20151116
  Transmission Date: 20160304
  Serious: No
  Sender: FDA-Public Use
  Company Number: None

PATIENT
  Age: 56 Year
  Sex: Female
  Weight: 81.65 kg

DRUGS (5)
  1. RIBOFLAVIN [Concomitant]
     Active Substance: RIBOFLAVIN
  2. GAVISCON [Concomitant]
     Active Substance: ALUMINUM HYDROXIDE\MAGNESIUM CARBONATE
  3. RIZATRIPTAN 10MG SUN PHARMA LABORATORIES [Suspect]
     Active Substance: RIZATRIPTAN
     Indication: MIGRAINE
     Dosage: 1 PILL
     Route: 048
  4. MAGNESIUM [Concomitant]
     Active Substance: MAGNESIUM
  5. PSYLLIUM [Concomitant]
     Active Substance: PLANTAGO SEED

REACTIONS (3)
  - Treatment failure [None]
  - Condition aggravated [None]
  - Product substitution issue [None]
